FAERS Safety Report 6852279-4 (Version None)
Quarter: 2010Q3

REPORT INFORMATION
  Report Type: 
  Country: None (occurrence: None)
  Receive Date: 20100717
  Receipt Date: 20071109
  Transmission Date: 20110219
  Serious: No
  Sender: FDA-Public Use
  Company Number: US-PFIZER INC-2007097080

PATIENT
  Sex: Male
  Weight: 90 kg

DRUGS (2)
  1. CHANTIX [Suspect]
     Indication: SMOKING CESSATION THERAPY
     Dates: start: 20071007
  2. LORAZEPAM [Concomitant]

REACTIONS (4)
  - DRY MOUTH [None]
  - GINGIVITIS [None]
  - ORAL PAIN [None]
  - RESPIRATORY TRACT IRRITATION [None]
